FAERS Safety Report 9416266 (Version 1)
Quarter: 2013Q3

REPORT INFORMATION
  Report Type: Spontaneous
  Country: LK (occurrence: LK)
  Receive Date: 20130718
  Receipt Date: 20130718
  Transmission Date: 20140515
  Serious: Yes (Hospitalization, Other)
  Sender: FDA-Public Use
  Company Number: 2013STPI000279

PATIENT
  Age: 6 Year
  Sex: Female
  Weight: 27 kg

DRUGS (7)
  1. CARNITOR [Suspect]
     Indication: HEPATOTOXICITY
     Route: 042
  2. CARNITOR [Suspect]
     Indication: HEPATOTOXICITY
     Route: 048
  3. SODIUM VALPROATE [Suspect]
     Indication: PARTIAL SEIZURES
  4. N-ACETYLCYSTEINE (N-ACETYLCYSTEINE) [Concomitant]
  5. LACTULOSE (LACTULOSE) [Concomitant]
  6. MANNITOL (MANNITOL) [Concomitant]
  7. PHOSPHATE LAXATIVE (SODIUM PHOSPHATE DIBASIC, SODIUM PHOSPHATE MONOBASIC (MONOHYDRATE)) [Concomitant]

REACTIONS (4)
  - Posterior reversible encephalopathy syndrome [None]
  - Hypertension [None]
  - Hepatotoxicity [None]
  - Hepatic encephalopathy [None]
